FAERS Safety Report 4441932-8 (Version None)
Quarter: 2004Q3

REPORT INFORMATION
  Report Type: 
  Country: None (occurrence: None)
  Receive Date: 20040903
  Receipt Date: 20040706
  Transmission Date: 20050211
  Serious: Yes (Other)
  Sender: FDA-Public Use
  Company Number: 2003UW15320

PATIENT
  Sex: Female

DRUGS (5)
  1. CRESTOR [Suspect]
     Dates: start: 20030901, end: 20040401
  2. CRESTOR [Suspect]
     Dates: start: 20040603
  3. LEXAPRO [Concomitant]
  4. METHOTREXATE [Concomitant]
  5. SYNTHROID [Concomitant]

REACTIONS (2)
  - PRURITUS [None]
  - VAGINAL MYCOSIS [None]
